FAERS Safety Report 21205052 (Version 1)
Quarter: 2022Q3

REPORT INFORMATION
  Report Type: Spontaneous
  Country: FR (occurrence: FR)
  Receive Date: 20220812
  Receipt Date: 20220812
  Transmission Date: 20221027
  Serious: Yes (Hospitalization)
  Sender: FDA-Public Use
  Company Number: None

PATIENT
  Age: 69 Year
  Sex: Male
  Weight: 65 kg

DRUGS (6)
  1. SIMVASTATIN [Suspect]
     Active Substance: SIMVASTATIN
     Indication: Cardiovascular event prophylaxis
     Dosage: UNIT DOSE : 20 MG , FREQUENCY TIME : 1 DAY ,   THERAPY START DATE : ASKU
  2. METFORMIN [Suspect]
     Active Substance: METFORMIN HYDROCHLORIDE
     Indication: Type 2 diabetes mellitus
     Dosage: UNIT DOSE : 1 GRAM , FREQUENCY TIME : 1 DAY ,THERAPY START DATE : ASKU
  3. KARDEGIC [Suspect]
     Active Substance: ASPIRIN DL-LYSINE
     Indication: Cardiovascular event prophylaxis
     Dosage: FORM STRENGTH : 75 MG, UNIT DOSE : 75 MG  , FREQUENCY TIME : 1 DAY  , POWDER FOR ORAL SOLUTION IN SA
  4. COMIRNATY [Suspect]
     Active Substance: TOZINAMERAN
     Indication: COVID-19 immunisation
     Dosage: R1 ,30 MICROGRAMS/DOSE, DISPERSION FOR INJECTION. MRNA (MODIFIED NUCLEOSIDE) VACCINE AGAINST COVID-1
     Dates: start: 20211208, end: 20211208
  5. PERINDOPRIL [Suspect]
     Active Substance: PERINDOPRIL
     Indication: Hypertension
     Dosage: FORM STRENGTH : 5 MG , UNIT DOSE : 1 DF , FREQUENCY TIME : 1 DAY ,THERAPY START DATE : ASKU
  6. VAXZEVRIA [Concomitant]
     Active Substance: AZD-1222
     Indication: Product used for unknown indication
     Dosage: D1+D2 , SUSPENSION FOR INJECTION. COVID-19 VACCINE (CHADOX1-S [RECOMBINANT]) , UNIT DOSE : 1 DF , FR
     Dates: start: 20210310, end: 20210602

REACTIONS (1)
  - Ischaemic stroke [Recovered/Resolved]

NARRATIVE: CASE EVENT DATE: 20220120
